FAERS Safety Report 5732915-6 (Version None)
Quarter: 2008Q2

REPORT INFORMATION
  Report Type: 
  Country: None (occurrence: None)
  Receive Date: 20080509
  Receipt Date: 20080428
  Transmission Date: 20081010
  Serious: No
  Sender: FDA-Public Use
  Company Number: A0715797A

PATIENT
  Age: 86 Year
  Sex: Female

DRUGS (6)
  1. COREG CR [Suspect]
     Indication: ATRIAL FIBRILLATION
     Dosage: 20MG PER DAY
     Route: 048
     Dates: start: 20080312
  2. PAROXETINE HCL [Suspect]
     Indication: DEPRESSION
     Dosage: 10MG PER DAY
     Route: 048
     Dates: start: 20080312
  3. COUMADIN [Concomitant]
  4. MICROZIDE [Concomitant]
  5. LORAZEPAM [Concomitant]
  6. LISINOPRIL [Concomitant]

REACTIONS (2)
  - MYALGIA [None]
  - PARAESTHESIA [None]
